FAERS Safety Report 25562963 (Version 3)
Quarter: 2025Q3

REPORT INFORMATION
  Report Type: Spontaneous
  Country: AR (occurrence: AR)
  Receive Date: 20250716
  Receipt Date: 20250911
  Transmission Date: 20251021
  Serious: Yes (Hospitalization)
  Sender: ROCHE
  Company Number: AR-002147023-NVSC2025AR111067

PATIENT
  Age: 69 Year
  Sex: Male

DRUGS (2)
  1. XOLAIR [Suspect]
     Active Substance: OMALIZUMAB
     Indication: Asthma
     Dosage: 300.00 MILLIGRAM PER MILLILITRE (4 WEEKS)
     Route: 058
     Dates: start: 20240816, end: 20250520
  2. XOLAIR [Suspect]
     Active Substance: OMALIZUMAB
     Dosage: 600 MILLIGRAM PER MILLILITRE (4 WEEKS)
     Route: 058
     Dates: start: 20240816

REACTIONS (5)
  - Lung abscess [Recovered/Resolved]
  - Bronchiectasis [Recovered/Resolved]
  - Lung cyst [Unknown]
  - Drug ineffective [Unknown]
  - Respiratory syncytial virus infection [Not Recovered/Not Resolved]

NARRATIVE: CASE EVENT DATE: 20250501
